FAERS Safety Report 20647305 (Version 1)
Quarter: 2022Q1

REPORT INFORMATION
  Report Type: Spontaneous
  Country: ES (occurrence: ES)
  Receive Date: 20220329
  Receipt Date: 20220329
  Transmission Date: 20220423
  Serious: No
  Sender: FDA-Public Use
  Company Number: ES-ALKEM LABORATORIES LIMITED-ES-ALKEM-2022-00021

PATIENT
  Age: 46 Year
  Sex: Female

DRUGS (2)
  1. GABAPENTIN [Suspect]
     Active Substance: GABAPENTIN
     Indication: Pelvic pain
     Dosage: 1800 MILLIGRAM, OD
     Route: 065
  2. MORPHINE SULFATE [Suspect]
     Active Substance: MORPHINE SULFATE
     Indication: Pelvic pain
     Dosage: 90 MILLIGRAM EQUIVALENTS PER DAY
     Route: 048

REACTIONS (1)
  - Drug ineffective [Unknown]
